FAERS Safety Report 17694623 (Version 2)
Quarter: 2020Q3

REPORT INFORMATION
  Report Type: Spontaneous
  Country: BR (occurrence: BR)
  Receive Date: 20200422
  Receipt Date: 20200817
  Transmission Date: 20201102
  Serious: Yes (Death, Hospitalization)
  Sender: FDA-Public Use
  Company Number: BR-JNJFOC-20200423815

PATIENT
  Age: 58 Year
  Sex: Male

DRUGS (4)
  1. COMPLEX B [VITAMIN B COMPLEX] [Concomitant]
  2. RIVAROXABAN [Suspect]
     Active Substance: RIVAROXABAN
     Indication: THROMBOSIS
     Dosage: 10 MG, BID FOR 20 DAYS,?XARELTO 10 MG
     Route: 048
     Dates: start: 201912
  3. RIVAROXABAN [Suspect]
     Active Substance: RIVAROXABAN
     Dosage: 20 MG, QD,?XARELTO 15 MG
     Route: 048
  4. FUROSEMID [FUROSEMIDE] [Concomitant]
     Active Substance: FUROSEMIDE

REACTIONS (4)
  - Coma [Unknown]
  - Multiple organ dysfunction syndrome [Fatal]
  - Off label use [Unknown]
  - Cardiac arrest [Unknown]

NARRATIVE: CASE EVENT DATE: 202001
